FAERS Safety Report 7492220-7 (Version None)
Quarter: 2011Q2

REPORT INFORMATION
  Report Type: 
  Country: None (occurrence: None)
  Receive Date: 20110519
  Receipt Date: 20101118
  Transmission Date: 20111010
  Serious: No
  Sender: FDA-Public Use
  Company Number: US-NOVEN-ALL1-2010-06082

PATIENT
  Sex: Male
  Weight: 30.839 kg

DRUGS (3)
  1. DAYTRANA [Suspect]
     Dosage: 30 MG, 1X/DAY:QD
     Route: 062
     Dates: end: 20100101
  2. DAYTRANA [Suspect]
     Dosage: UNK MG, 1X/DAY:QD(30MG PATCH PLUS HALF OF A 30 MG PATCH)
     Route: 062
     Dates: start: 20100101
  3. RISPERDAL [Concomitant]
     Dosage: 0.5 MG, 1X/DAY:QD
     Route: 048

REACTIONS (4)
  - DRUG ADMINISTERED AT INAPPROPRIATE SITE [None]
  - OVERDOSE [None]
  - PSYCHOMOTOR HYPERACTIVITY [None]
  - WRONG TECHNIQUE IN DRUG USAGE PROCESS [None]
